FAERS Safety Report 12275913 (Version 1)
Quarter: 2016Q2

REPORT INFORMATION
  Report Type: Spontaneous
  Country: CO (occurrence: CO)
  Receive Date: 20160418
  Receipt Date: 20160418
  Transmission Date: 20160815
  Serious: Yes (Hospitalization)
  Sender: FDA-Public Use
  Company Number: CO-BAXTER-2016BAX018537

PATIENT
  Age: 76 Year
  Sex: Female

DRUGS (12)
  1. LACTATED RINGERS [Suspect]
     Active Substance: CALCIUM CHLORIDE\POTASSIUM CHLORIDE\SODIUM CHLORIDE\SODIUM LACTATE
     Indication: OFF LABEL USE
  2. OQ-SEINA [Concomitant]
     Indication: PRODUCT USED FOR UNKNOWN INDICATION
     Route: 065
     Dates: start: 20160303, end: 20160303
  3. OQ SEPTIC [Concomitant]
     Indication: PRODUCT USED FOR UNKNOWN INDICATION
     Route: 065
     Dates: start: 20160303, end: 20160303
  4. VISCO SHIELD [Concomitant]
     Active Substance: HYPROMELLOSE 2208 (15000 MPA.S)
     Indication: PRODUCT USED FOR UNKNOWN INDICATION
     Route: 065
     Dates: start: 20160303, end: 20160303
  5. VIGADEXA [Concomitant]
     Active Substance: DEXAMETHASONE SODIUM PHOSPHATE\MOXIFLOXACIN HYDROCHLORIDE
     Indication: PRODUCT USED FOR UNKNOWN INDICATION
     Route: 065
     Dates: start: 20160303, end: 20160303
  6. NEVANAC [Concomitant]
     Active Substance: NEPAFENAC
     Indication: POSTOPERATIVE CARE
     Dosage: POST SURGERY
     Route: 065
  7. OQ-MIOT [Concomitant]
     Indication: PRODUCT USED FOR UNKNOWN INDICATION
     Route: 065
     Dates: start: 20160303, end: 20160303
  8. BRIMONIDINE TARTRATE. [Concomitant]
     Active Substance: BRIMONIDINE TARTRATE
     Indication: PRODUCT USED FOR UNKNOWN INDICATION
     Dates: start: 20160303, end: 20160303
  9. LACTATED RINGERS [Suspect]
     Active Substance: CALCIUM CHLORIDE\POTASSIUM CHLORIDE\SODIUM CHLORIDE\SODIUM LACTATE
     Indication: EYE IRRIGATION
     Route: 047
     Dates: start: 20160303, end: 20160303
  10. VIGAMOX [Concomitant]
     Active Substance: MOXIFLOXACIN HYDROCHLORIDE
     Indication: PROPHYLAXIS
     Route: 065
     Dates: start: 20160301, end: 20160303
  11. VIGADEXA [Concomitant]
     Active Substance: DEXAMETHASONE SODIUM PHOSPHATE\MOXIFLOXACIN HYDROCHLORIDE
     Indication: POSTOPERATIVE CARE
     Dosage: POST-SURGERY
     Route: 065
  12. TROPICAMIDE. [Concomitant]
     Active Substance: TROPICAMIDE
     Indication: PRODUCT USED FOR UNKNOWN INDICATION
     Route: 065
     Dates: start: 20160303, end: 20160303

REACTIONS (1)
  - Corneal oedema [Recovered/Resolved]

NARRATIVE: CASE EVENT DATE: 20160304
